FAERS Safety Report 6543476-6 (Version None)
Quarter: 2010Q1

REPORT INFORMATION
  Report Type: 
  Country: None (occurrence: None)
  Receive Date: 20100120
  Receipt Date: 20100118
  Transmission Date: 20100710
  Serious: Yes (Death)
  Sender: FDA-Public Use
  Company Number: A0840264A

PATIENT
  Age: 69 Year
  Sex: Male

DRUGS (3)
  1. ADVAIR [Suspect]
     Route: 065
  2. VENTOLIN [Suspect]
     Route: 065
  3. OXYGEN [Concomitant]

REACTIONS (2)
  - DEATH [None]
  - PNEUMONIA [None]
